FAERS Safety Report 9002108 (Version 1)
Quarter: 2013Q1

REPORT INFORMATION
  Report Type: Spontaneous
  Country: US (occurrence: US)
  Receive Date: 20130107
  Receipt Date: 20130107
  Transmission Date: 20140127
  Serious: Yes (Other)
  Sender: FDA-Public Use
  Company Number: US-ROCHE-1093227

PATIENT
  Sex: Male

DRUGS (4)
  1. PEGASYS [Suspect]
     Indication: CHRONIC HEPATITIS C
     Route: 058
     Dates: start: 20120725
  2. COPEGUS [Suspect]
     Indication: CHRONIC HEPATITIS C
     Dosage: IN DIVIDED DOSES DAILY
     Route: 048
     Dates: start: 20120725
  3. COPEGUS [Suspect]
     Route: 065
  4. INCIVEK [Suspect]
     Indication: CHRONIC HEPATITIS C
     Route: 065
     Dates: start: 20120725

REACTIONS (9)
  - Lower limb fracture [Unknown]
  - Headache [Unknown]
  - Myalgia [Unknown]
  - Malaise [Unknown]
  - Fatigue [Unknown]
  - Dry skin [Unknown]
  - Dry mouth [Unknown]
  - Anaemia [Unknown]
  - Malaise [Unknown]
